FAERS Safety Report 10012883 (Version 2)
Quarter: 2014Q2

REPORT INFORMATION
  Report Type: Report from Study
  Country: UG (occurrence: UG)
  Receive Date: 20140314
  Receipt Date: 20140401
  Transmission Date: 20141212
  Serious: Yes (Life-Threatening, Hospitalization)
  Sender: FDA-Public Use
  Company Number: UG-BRISTOL-MYERS SQUIBB COMPANY-20415295

PATIENT
  Age: 34 Year
  Sex: Male

DRUGS (7)
  1. EFAVIRENZ CAPS [Suspect]
     Indication: HIV INFECTION
     Dosage: ONGOING
     Route: 048
     Dates: start: 20140127, end: 20140227
  2. MK-0518 [Suspect]
     Indication: HIV INFECTION
     Dosage: ONGOING
     Route: 048
     Dates: start: 20140127
  3. LAMIVUDINE [Suspect]
     Indication: HIV INFECTION
     Dosage: TABLET;ONGOING
     Dates: start: 20140127
  4. ZIDOVUDINE [Suspect]
     Indication: HIV INFECTION
     Dosage: ONGOING
     Dates: start: 20140127
  5. RIFAMPIN [Suspect]
     Dosage: ONGOING
     Dates: start: 20130715
  6. ISONIAZID [Suspect]
     Dosage: ONGOING
     Dates: start: 20130715
  7. SULFAMETHOXAZOLE + TRIMETHOPRIM [Concomitant]
     Dosage: ONGOING
     Dates: start: 20130715

REACTIONS (1)
  - Meningitis cryptococcal [Not Recovered/Not Resolved]
